FAERS Safety Report 6122906-8 (Version None)
Quarter: 2009Q1

REPORT INFORMATION
  Report Type: 
  Country: None (occurrence: None)
  Receive Date: 20090318
  Receipt Date: 20080701
  Transmission Date: 20090719
  Serious: No
  Sender: FDA-Public Use
  Company Number: US-AMGEN-KDL291870

PATIENT
  Sex: Female
  Weight: 40.9 kg

DRUGS (5)
  1. NEULASTA [Suspect]
     Indication: CHEMOTHERAPY
  2. ADRIAMYCIN RDF [Concomitant]
  3. CYTOXAN [Concomitant]
  4. TAXOL [Concomitant]
  5. DECADRON [Concomitant]

REACTIONS (1)
  - WHITE BLOOD CELL COUNT INCREASED [None]
